FAERS Safety Report 10790437 (Version 2)
Quarter: 2015Q1

REPORT INFORMATION
  Report Type: Spontaneous
  Country: DE (occurrence: DE)
  Receive Date: 20150212
  Receipt Date: 20150220
  Transmission Date: 20150721
  Serious: Yes (Other)
  Sender: FDA-Public Use
  Company Number: DE-ALLERGAN-1502076US

PATIENT
  Age: 60 Year
  Sex: Female

DRUGS (1)
  1. OZURDEX [Suspect]
     Active Substance: DEXAMETHASONE
     Indication: MACULAR OEDEMA
     Dosage: 0.7 MG, SINGLE
     Route: 031
     Dates: start: 20141202, end: 20141202

REACTIONS (2)
  - Vitreous opacities [Not Recovered/Not Resolved]
  - Retinal operation [Not Recovered/Not Resolved]

NARRATIVE: CASE EVENT DATE: 20141211
